FAERS Safety Report 4738494-4 (Version None)
Quarter: 2005Q3

REPORT INFORMATION
  Report Type: 
  Country: None (occurrence: None)
  Receive Date: 20050809
  Receipt Date: 20050727
  Transmission Date: 20060218
  Serious: Yes (Hospitalization)
  Sender: FDA-Public Use
  Company Number: GB-JNJFOC-20050602327

PATIENT
  Sex: Male

DRUGS (2)
  1. TOPAMAX [Suspect]
     Indication: TEMPORAL LOBE EPILEPSY
     Route: 048
  2. PHENYTOIN [Suspect]
     Indication: EPILEPSY

REACTIONS (8)
  - DISTURBANCE IN ATTENTION [None]
  - DRUG TOXICITY [None]
  - GRAND MAL CONVULSION [None]
  - HYPERVENTILATION [None]
  - INSOMNIA [None]
  - LACERATION [None]
  - PANIC ATTACK [None]
  - STATUS EPILEPTICUS [None]
